FAERS Safety Report 7235544-0 (Version None)
Quarter: 2011Q1

REPORT INFORMATION
  Report Type: 
  Country: None (occurrence: None)
  Receive Date: 20110120
  Receipt Date: 20110111
  Transmission Date: 20110831
  Serious: Yes (Other)
  Sender: FDA-Public Use
  Company Number: PHHY2010CA26545

PATIENT
  Sex: Female
  Weight: 68 kg

DRUGS (6)
  1. FOLIC ACID [Concomitant]
  2. EXJADE [Suspect]
     Indication: SICKLE CELL ANAEMIA
     Dosage: 1250 MG, QD
     Route: 048
     Dates: start: 20091101, end: 20100701
  3. WARFARIN [Concomitant]
  4. LANSOPRAZOLE [Concomitant]
     Dosage: 30 MG DAILY
     Route: 048
  5. EXJADE [Suspect]
     Indication: IRON OVERLOAD
  6. HYDROCODONE [Concomitant]
     Dosage: 8 MG, UNK

REACTIONS (2)
  - DRUG EXPOSURE DURING PREGNANCY [None]
  - ABORTION SPONTANEOUS [None]
